FAERS Safety Report 18566163 (Version 1)
Quarter: 2020Q4

REPORT INFORMATION
  Report Type: Spontaneous
  Country: RS (occurrence: RS)
  Receive Date: 20201201
  Receipt Date: 20201201
  Transmission Date: 20210114
  Serious: Yes (Other)
  Sender: FDA-Public Use
  Company Number: RS-B.I. PHARMACEUTICALS,INC./RIDGEFIELD-2020-BI-064177

PATIENT
  Age: 81 Year
  Sex: Male

DRUGS (5)
  1. GILOTRIF [Suspect]
     Active Substance: AFATINIB
     Indication: EGFR GENE MUTATION
     Dates: start: 201806, end: 201806
  2. GILOTRIF [Suspect]
     Active Substance: AFATINIB
     Dates: start: 201910
  3. GILOTRIF [Suspect]
     Active Substance: AFATINIB
     Dates: end: 202010
  4. GILOTRIF [Suspect]
     Active Substance: AFATINIB
     Indication: NON-SMALL CELL LUNG CANCER
     Dates: start: 201710
  5. GILOTRIF [Suspect]
     Active Substance: AFATINIB
     Dates: start: 202002

REACTIONS (5)
  - Disease progression [Unknown]
  - Gastric haemorrhage [Unknown]
  - Rash [Unknown]
  - Conjunctivitis [Unknown]
  - Rash [Unknown]

NARRATIVE: CASE EVENT DATE: 201710
